FAERS Safety Report 21988191 (Version 3)
Quarter: 2023Q1

REPORT INFORMATION
  Report Type: Other
  Country: US (occurrence: None)
  Receive Date: 20230214
  Receipt Date: 20230329
  Transmission Date: 20230418
  Serious: Yes (Other)
  Sender: FDA-Public Use
  Company Number: US-ROCHE-3229845

PATIENT
  Age: 51 Year
  Sex: Female
  Weight: 74.910 kg

DRUGS (14)
  1. OCREVUS [Suspect]
     Active Substance: OCRELIZUMAB
     Indication: Relapsing multiple sclerosis
     Route: 042
     Dates: start: 20180503, end: 20220517
  2. OCREVUS [Suspect]
     Active Substance: OCRELIZUMAB
     Dosage: STARTED MAYBE AROUND -MAY-2019 ABOUT 3 TO 4 YEARS AGO
     Route: 042
     Dates: start: 201905, end: 202111
  3. OCREVUS [Suspect]
     Active Substance: OCRELIZUMAB
     Dosage: HALF THE DOSE STARTED MAYBE NOV-2021
     Route: 042
     Dates: start: 202111
  4. XANAX [Concomitant]
     Active Substance: ALPRAZOLAM
     Indication: Insomnia
     Dosage: TAKES AT NIGHT AND IF NEEDED DURING THE DAY. STARTED MAYBE 4 YEARS AGO. STOPPED ABOUT OCT-2022
     Dates: end: 202210
  5. XANAX [Concomitant]
     Active Substance: ALPRAZOLAM
     Indication: Panic attack
  6. ADDERALL [Concomitant]
     Active Substance: AMPHETAMINE ASPARTATE\AMPHETAMINE SULFATE\DEXTROAMPHETAMINE SACCHARATE\DEXTROAMPHETAMINE SULFATE
     Indication: Somnolence
     Dosage: STARTED 6 YEARS AGO TAKES AS NEEDED
     Route: 048
  7. MYCOSTATIN [Concomitant]
     Active Substance: NYSTATIN
  8. MIRALAX [Concomitant]
     Active Substance: POLYETHYLENE GLYCOL 3350
  9. CALCIUM [Concomitant]
     Active Substance: CALCIUM
  10. IBUPROFEN [Concomitant]
     Active Substance: IBUPROFEN
     Indication: Pain
     Dosage: STARTED A FEW YEARS AGO. TAKES AS NEEDED
     Route: 048
  11. TYLENOL [Concomitant]
     Active Substance: ACETAMINOPHEN
     Indication: Pain
     Dosage: STARTED BEFORE OCREVUS
     Route: 048
  12. TYLENOL [Concomitant]
     Active Substance: ACETAMINOPHEN
     Indication: Headache
     Dosage: GIVEN AS PRE INFUSION COCKTAIL STARTED WITH 1ST OCREVUS INFUSION
     Route: 048
     Dates: end: 20220517
  13. TRAZODONE [Concomitant]
     Active Substance: TRAZODONE HYDROCHLORIDE
     Indication: Insomnia
     Route: 048
     Dates: start: 202210
  14. HYDROCORTISONE [Concomitant]
     Active Substance: HYDROCORTISONE
     Dosage: STARTED MAYBE 1 TO 1.5 YEARS AGO. TAKES ON MONDAY THRU FRIDAY. SHE ONLY SHE DOES IT ONCE A DAY?2.5 %
     Route: 061

REACTIONS (5)
  - Invasive ductal breast carcinoma [Unknown]
  - Off label use [Unknown]
  - Fungal infection [Not Recovered/Not Resolved]
  - Headache [Recovered/Resolved]
  - Nasopharyngitis [Unknown]

NARRATIVE: CASE EVENT DATE: 20211101
